FAERS Safety Report 5447680-X (Version None)
Quarter: 2007Q3

REPORT INFORMATION
  Report Type: 
  Country: None (occurrence: None)
  Receive Date: 20070906
  Receipt Date: 20070906
  Transmission Date: 20080115
  Serious: Yes (Hospitalization)
  Sender: FDA-Public Use
  Company Number: None

PATIENT
  Age: 75 Year
  Sex: Male
  Weight: 51.6 kg

DRUGS (13)
  1. BEVACIZUMAB [Suspect]
     Indication: OESOPHAGEAL CARCINOMA
     Dosage: 10MG/KG DAY 1 Q 3 WEEKS IV (C1+C2)
     Route: 042
     Dates: start: 20070713, end: 20070803
  2. DOCETAXEL [Suspect]
     Indication: OESOPHAGEAL CARCINOMA
     Dosage: 30,37,5+,25 MG/M2 DAYS1+8 Q3WEEKS IV (C1-C2)
     Route: 042
     Dates: start: 20070713
  3. DOCETAXEL [Suspect]
     Indication: OESOPHAGEAL CARCINOMA
     Dosage: 30,37,5+,25 MG/M2 DAYS1+8 Q3WEEKS IV (C1-C2)
     Route: 042
     Dates: start: 20070720
  4. DOCETAXEL [Suspect]
     Indication: OESOPHAGEAL CARCINOMA
     Dosage: 30,37,5+,25 MG/M2 DAYS1+8 Q3WEEKS IV (C1-C2)
     Route: 042
     Dates: start: 20070803
  5. DOCETAXEL [Suspect]
     Indication: OESOPHAGEAL CARCINOMA
     Dosage: 30,37,5+,25 MG/M2 DAYS1+8 Q3WEEKS IV (C1-C2)
     Route: 042
     Dates: start: 20070810
  6. IRINOTECAN HCL [Suspect]
     Indication: OESOPHAGEAL CARCINOMA
     Dosage: 30,37,5+,25 MG/M2 DAYS1+8 Q3WEEKS IV (C1-C2)
     Route: 042
     Dates: start: 20070713
  7. IRINOTECAN HCL [Suspect]
     Indication: OESOPHAGEAL CARCINOMA
     Dosage: 30,37,5+,25 MG/M2 DAYS1+8 Q3WEEKS IV (C1-C2)
     Route: 042
     Dates: start: 20070720
  8. IRINOTECAN HCL [Suspect]
     Indication: OESOPHAGEAL CARCINOMA
     Dosage: 30,37,5+,25 MG/M2 DAYS1+8 Q3WEEKS IV (C1-C2)
     Route: 042
     Dates: start: 20070803
  9. IRINOTECAN HCL [Suspect]
     Indication: OESOPHAGEAL CARCINOMA
     Dosage: 30,37,5+,25 MG/M2 DAYS1+8 Q3WEEKS IV (C1-C2)
     Route: 042
     Dates: start: 20070810
  10. CISPLATIN [Suspect]
     Indication: OESOPHAGEAL CARCINOMA
     Dosage: 30,37,5+,25 MG/M2 DAYS1+8 Q3WEEKS IV (C1-C2)
     Route: 042
     Dates: start: 20070713
  11. CISPLATIN [Suspect]
     Indication: OESOPHAGEAL CARCINOMA
     Dosage: 30,37,5+,25 MG/M2 DAYS1+8 Q3WEEKS IV (C1-C2)
     Route: 042
     Dates: start: 20070720
  12. CISPLATIN [Suspect]
     Indication: OESOPHAGEAL CARCINOMA
     Dosage: 30,37,5+,25 MG/M2 DAYS1+8 Q3WEEKS IV (C1-C2)
     Route: 042
     Dates: start: 20070803
  13. CISPLATIN [Suspect]
     Indication: OESOPHAGEAL CARCINOMA
     Dosage: 30,37,5+,25 MG/M2 DAYS1+8 Q3WEEKS IV (C1-C2)
     Route: 042
     Dates: start: 20070810

REACTIONS (3)
  - DEHYDRATION [None]
  - DIARRHOEA [None]
  - FEBRILE NEUTROPENIA [None]
